FAERS Safety Report 6633711-8 (Version None)
Quarter: 2010Q1

REPORT INFORMATION
  Report Type: 
  Country: None (occurrence: None)
  Receive Date: 20100315
  Receipt Date: 20100308
  Transmission Date: 20100710
  Serious: Yes (Hospitalization)
  Sender: FDA-Public Use
  Company Number: US-BIOGENIDEC-2010BI005319

PATIENT
  Age: 51 Year
  Sex: Female

DRUGS (26)
  1. TYSABRI [Suspect]
     Indication: MULTIPLE SCLEROSIS
     Route: 042
     Dates: start: 20080520
  2. BISACODYL [Concomitant]
     Route: 054
  3. COGENTIN [Concomitant]
     Route: 048
  4. DEPAKOTE ER [Concomitant]
     Route: 048
  5. DIPHENOXYLATE [Concomitant]
  6. ENABLEX [Concomitant]
     Route: 048
  7. FLUTICASONE [Concomitant]
     Route: 045
  8. HALDOL [Concomitant]
     Route: 048
  9. HYDROCODONE [Concomitant]
  10. APAP TAB [Concomitant]
  11. IMODIUM [Concomitant]
     Route: 048
  12. KLONOPIN [Concomitant]
     Route: 048
  13. LACTULOSE [Concomitant]
     Route: 048
  14. MELOXICAM [Concomitant]
     Route: 048
  15. MILK OF MAGNESIA TAB [Concomitant]
     Route: 048
  16. MIRALAX [Concomitant]
     Route: 048
  17. NATURES TEARS [Concomitant]
     Route: 047
  18. NITRO SPRAY [Concomitant]
     Route: 060
  19. OMEPRAZOLE [Concomitant]
     Route: 048
  20. PATADAY [Concomitant]
     Route: 047
  21. PAXIL [Concomitant]
     Route: 048
  22. POTASSIUM CHLORIDE [Concomitant]
     Route: 048
  23. PROVENTIL [Concomitant]
     Route: 055
  24. SPIRONOLACTONE [Concomitant]
     Route: 048
  25. SYMBICORT [Concomitant]
     Route: 055
  26. SYNTHROID [Concomitant]
     Dosage: DOSE UNIT:88
     Route: 048

REACTIONS (2)
  - CONVULSION [None]
  - ESCHERICHIA URINARY TRACT INFECTION [None]
